FAERS Safety Report 15583562 (Version 1)
Quarter: 2018Q4

REPORT INFORMATION
  Report Type: Spontaneous
  Country: GB (occurrence: GB)
  Receive Date: 20181104
  Receipt Date: 20181104
  Transmission Date: 20190205
  Serious: Yes (Other)
  Sender: FDA-Public Use
  Company Number: GB-TORRENT-00001854

PATIENT
  Age: 16 Year
  Sex: Male
  Weight: 56 kg

DRUGS (4)
  1. OLANZAPINE. [Suspect]
     Active Substance: OLANZAPINE
     Indication: PSYCHOTIC DISORDER
     Dosage: 15 MG, QD
     Route: 048
     Dates: start: 20120524
  2. ZUCLOPENTHIXOL [Concomitant]
     Active Substance: ZUCLOPENTHIXOL
     Indication: PSYCHOTIC DISORDER
     Dosage: 50 MG, SINGLE
     Route: 030
     Dates: start: 20120523, end: 20120523
  3. ZYPREXA [Suspect]
     Active Substance: OLANZAPINE
     Indication: PSYCHOTIC DISORDER
     Dosage: 5 MG, PRN
     Route: 030
     Dates: start: 20120521, end: 20120523
  4. BRAND NAME UNSPECIFY [Suspect]
     Active Substance: UNSPECIFIED INGREDIENT
     Indication: PRODUCT USED FOR UNKNOWN INDICATION
     Dates: start: 20120522

REACTIONS (7)
  - Blood thrombin increased [Unknown]
  - Blood creatinine increased [Unknown]
  - Troponin increased [Recovering/Resolving]
  - Myocarditis [Recovered/Resolved]
  - Pericarditis [Recovered/Resolved]
  - Psychotic disorder [Unknown]
  - Chest pain [Unknown]

NARRATIVE: CASE EVENT DATE: 20120525
